FAERS Safety Report 9742102 (Version 5)
Quarter: 2015Q2

REPORT INFORMATION
  Report Type: Spontaneous
  Country: US (occurrence: US)
  Receive Date: 20131210
  Receipt Date: 20150430
  Transmission Date: 20150821
  Serious: Yes (Other)
  Sender: FDA-Public Use
  Company Number: US-BAYER-2013-148661

PATIENT
  Age: 27 Year
  Sex: Female
  Weight: 58.96 kg

DRUGS (1)
  1. MIRENA [Suspect]
     Active Substance: LEVONORGESTREL
     Indication: CONTRACEPTION
     Dosage: 20 MCG/24HR, CONT
     Route: 015
     Dates: start: 20080319, end: 20081104

REACTIONS (9)
  - Dysmenorrhoea [None]
  - Menorrhagia [None]
  - Uterine perforation [None]
  - Depression [None]
  - Device breakage [None]
  - Pain [None]
  - Injury [None]
  - Device issue [None]
  - Infertility female [None]

NARRATIVE: CASE EVENT DATE: 2008
